FAERS Safety Report 9337857 (Version 1)
Quarter: 2013Q2

REPORT INFORMATION
  Report Type: Spontaneous
  Country: JP (occurrence: JP)
  Receive Date: 20130607
  Receipt Date: 20130607
  Transmission Date: 20140414
  Serious: No
  Sender: FDA-Public Use
  Company Number: JP-SUCAMPO PHARMA AMERICAS, INC-SPI201300388

PATIENT
  Age: 53 Year
  Sex: Female
  Weight: 64 kg

DRUGS (7)
  1. AMITIZA [Suspect]
     Indication: CONSTIPATION
     Dosage: 24 ?G, BID
     Route: 048
     Dates: start: 20130221, end: 20130520
  2. CRESTOR [Concomitant]
     Indication: HYPERCHOLESTEROLAEMIA
     Dosage: 5 MG, QD
     Route: 048
     Dates: start: 20070327
  3. NORVASC [Concomitant]
     Indication: HYPERTENSION
     Dosage: 2.5 MG, QD
     Route: 048
     Dates: start: 20070424
  4. LAC B [Concomitant]
     Indication: CONSTIPATION
     Dosage: 1 DF, TID
     Route: 048
     Dates: start: 2009
  5. PAXIL [Concomitant]
     Indication: PANIC DISORDER
     Dosage: 30 MG, QD
     Route: 048
  6. SOLANAX [Concomitant]
     Indication: PANIC DISORDER
     Dosage: 0.4 MG, TID
     Route: 048
  7. MELSMON [Concomitant]
     Indication: MENOPAUSAL SYMPTOMS
     Dosage: 2 ML, TWICE A WEEK
     Route: 030
     Dates: start: 20070424

REACTIONS (1)
  - Dyspnoea [Recovered/Resolved]
